FAERS Safety Report 23924169 (Version 1)
Quarter: 2024Q2

REPORT INFORMATION
  Report Type: Spontaneous
  Country: US (occurrence: None)
  Receive Date: 20240530
  Receipt Date: 20240530
  Transmission Date: 20240716
  Serious: No
  Sender: FDA-Public Use
  Company Number: None

PATIENT
  Age: 51 Year
  Sex: Male
  Weight: 112.95 kg

DRUGS (8)
  1. AZSTARYS [Suspect]
     Active Substance: DEXMETHYLPHENIDATE HYDROCHLORIDE\SERDEXMETHYLPHENIDATE CHLORIDE
     Indication: Attention deficit hyperactivity disorder
     Dosage: 1 CAPSULE ORAL
     Route: 048
     Dates: start: 20231101, end: 20240509
  2. AZSTARYS [Suspect]
     Active Substance: DEXMETHYLPHENIDATE HYDROCHLORIDE\SERDEXMETHYLPHENIDATE CHLORIDE
     Indication: Obsessive-compulsive disorder
  3. AZSTARYS [Concomitant]
     Active Substance: DEXMETHYLPHENIDATE HYDROCHLORIDE\SERDEXMETHYLPHENIDATE CHLORIDE
  4. CLONIDINE [Concomitant]
     Active Substance: CLONIDINE
  5. VOLTAREN [Concomitant]
     Active Substance: DICLOFENAC SODIUM
  6. EMULGEL [Concomitant]
  7. TUMERIC WITH CIRCUMIN [Concomitant]
  8. VITA B D E GUMMIES [Concomitant]

REACTIONS (4)
  - Irritability [None]
  - Agitation [None]
  - Spontaneous penile erection [None]
  - Heart rate increased [None]

NARRATIVE: CASE EVENT DATE: 20240101
